FAERS Safety Report 21733887 (Version 1)
Quarter: 2022Q4

REPORT INFORMATION
  Report Type: Spontaneous
  Country: CN (occurrence: CN)
  Receive Date: 20221215
  Receipt Date: 20221215
  Transmission Date: 20230112
  Serious: Yes (Life-Threatening, Other)
  Sender: FDA-Public Use
  Company Number: CN-BAYER-2022A171226

PATIENT
  Age: 63 Year
  Sex: Male
  Weight: 73 kg

DRUGS (1)
  1. ULTRAVIST [Suspect]
     Active Substance: IOPROMIDE
     Indication: Computerised tomogram
     Dosage: 80 ML, ONCE
     Route: 041
     Dates: start: 20221101, end: 20221101

REACTIONS (6)
  - Hypoaesthesia [Recovering/Resolving]
  - Flushing [Recovering/Resolving]
  - Unresponsive to stimuli [None]
  - Dysstasia [None]
  - Blood pressure diastolic decreased [None]
  - Incorrect drug administration rate [None]

NARRATIVE: CASE EVENT DATE: 20221101
